FAERS Safety Report 6218103-8 (Version None)
Quarter: 2009Q2

REPORT INFORMATION
  Report Type: 
  Country: None (occurrence: None)
  Receive Date: 20090608
  Receipt Date: 20090527
  Transmission Date: 20091009
  Serious: Yes (Other)
  Sender: FDA-Public Use
  Company Number: PHHY2009LT20472

PATIENT
  Age: 6 Year
  Sex: Male

DRUGS (1)
  1. ELIDEL [Suspect]
     Indication: DERMATITIS ATOPIC
     Dosage: APPLIED TWICE A DAY
     Route: 061
     Dates: start: 20090412, end: 20090508

REACTIONS (6)
  - DERMATITIS BULLOUS [None]
  - ERYTHEMA [None]
  - EYELID OEDEMA [None]
  - EYELID PAIN [None]
  - EYELIDS PRURITUS [None]
  - PHOTOSENSITIVITY REACTION [None]
